FAERS Safety Report 7775625-6 (Version None)
Quarter: 2011Q3

REPORT INFORMATION
  Report Type: 
  Country: None (occurrence: None)
  Receive Date: 20110923
  Receipt Date: 20110922
  Transmission Date: 20111222
  Serious: Yes (Hospitalization)
  Sender: FDA-Public Use
  Company Number: US-GLAXOSMITHKLINE-A0844088A

PATIENT
  Age: 59 Year
  Sex: Male
  Weight: 152.3 kg

DRUGS (1)
  1. AVANDIA [Suspect]
     Indication: TYPE 2 DIABETES MELLITUS
     Dosage: 4MG TWICE PER DAY
     Route: 048
     Dates: start: 20030101, end: 20070101

REACTIONS (4)
  - CARDIAC FAILURE CONGESTIVE [None]
  - CHEST PAIN [None]
  - DISABILITY [None]
  - APPARENT DEATH [None]
